FAERS Safety Report 10370323 (Version 1)
Quarter: 2014Q3

REPORT INFORMATION
  Report Type: Spontaneous
  Country: US (occurrence: None)
  Receive Date: 20140807
  Receipt Date: 20140807
  Transmission Date: 20150326
  Serious: Yes (Death)
  Sender: FDA-Public Use
  Company Number: None

PATIENT
  Age: 69 Year
  Sex: Male
  Weight: 93.5 kg

DRUGS (8)
  1. CYTARABINE. [Suspect]
     Active Substance: CYTARABINE
     Dosage: TOTAL DOSE ADMINISTERED
     Dates: start: 20140717
  2. CETRIZINE [Concomitant]
     Active Substance: CETIRIZINE HYDROCHLORIDE
  3. LASIX [Concomitant]
     Active Substance: FUROSEMIDE
  4. NEXIUM [Concomitant]
     Active Substance: ESOMEPRAZOLE MAGNESIUM
  5. POTASSIUM [Concomitant]
     Active Substance: POTASSIUM
  6. DAUNORUBICIN [Suspect]
     Active Substance: DAUNORUBICIN
     Dosage: TOTAL DOSE ADMINISTERED
     Dates: start: 20140717
  7. ASPIRIN. [Concomitant]
     Active Substance: ASPIRIN
  8. LIPITOR [Concomitant]
     Active Substance: ATORVASTATIN CALCIUM

REACTIONS (8)
  - Pulmonary oedema [None]
  - Atrial fibrillation [None]
  - Pleural effusion [None]
  - Computerised tomogram abnormal [None]
  - Diarrhoea [None]
  - Pneumonia [None]
  - Pyrexia [None]
  - Oxygen saturation decreased [None]

NARRATIVE: CASE EVENT DATE: 20140724
